FAERS Safety Report 17957568 (Version 2)
Quarter: 2020Q3

REPORT INFORMATION
  Report Type: Spontaneous
  Country: US (occurrence: US)
  Receive Date: 20200629
  Receipt Date: 20200701
  Transmission Date: 20201103
  Serious: No
  Sender: FDA-Public Use
  Company Number: US-TEVA-2020-US-1792816

PATIENT
  Sex: Male

DRUGS (1)
  1. TADAFIL TEVA [Suspect]
     Active Substance: TADALAFIL
     Indication: BENIGN PROSTATIC HYPERPLASIA
     Route: 065
     Dates: start: 202002

REACTIONS (4)
  - Hyperhidrosis [Unknown]
  - Product substitution issue [Unknown]
  - Drug ineffective [Unknown]
  - Pollakiuria [Unknown]

NARRATIVE: CASE EVENT DATE: 2020
